FAERS Safety Report 6871825-8 (Version None)
Quarter: 2010Q3

REPORT INFORMATION
  Report Type: 
  Country: None (occurrence: None)
  Receive Date: 20100723
  Receipt Date: 20100715
  Transmission Date: 20110219
  Serious: Yes (Other)
  Sender: FDA-Public Use
  Company Number: B0666851A

PATIENT
  Age: 66 Year
  Sex: Female

DRUGS (1)
  1. FONDAPARINUX SODIUM [Suspect]
     Route: 065

REACTIONS (3)
  - AUTOIMMUNE THROMBOCYTOPENIA [None]
  - HEPARIN-INDUCED THROMBOCYTOPENIA [None]
  - SEPSIS [None]
